FAERS Safety Report 19482531 (Version 2)
Quarter: 2021Q3

REPORT INFORMATION
  Report Type: Spontaneous
  Country: US (occurrence: US)
  Receive Date: 20210701
  Receipt Date: 20210705
  Transmission Date: 20211014
  Serious: No
  Sender: FDA-Public Use
  Company Number: US-SA-2021SA213511

PATIENT
  Age: 20 Year
  Sex: Female

DRUGS (5)
  1. HYDROXYZINE HCL [Concomitant]
     Active Substance: HYDROXYZINE HYDROCHLORIDE
     Dosage: 10 UNK
  2. CETAPHIL [SOFT SOAP] [Concomitant]
  3. MUPIROCIN. [Concomitant]
     Active Substance: MUPIROCIN
  4. DUPIXENT [Suspect]
     Active Substance: DUPILUMAB
     Indication: ECZEMA
     Dosage: 300 MG, QOW
     Route: 058
  5. VALACYCLOVIR [Concomitant]
     Active Substance: VALACYCLOVIR HYDROCHLORIDE
     Dosage: UNK

REACTIONS (6)
  - Pruritus [Unknown]
  - Skin weeping [Unknown]
  - Product dose omission issue [Unknown]
  - Skin exfoliation [Unknown]
  - Skin fissures [Unknown]
  - Sleep disorder [Unknown]

NARRATIVE: CASE EVENT DATE: 202106
